FAERS Safety Report 9416348 (Version 1)
Quarter: 2013Q1

REPORT INFORMATION
  Report Type: Spontaneous
  Country: US (occurrence: None)
  Receive Date: 20130314
  Receipt Date: 20130314
  Transmission Date: 20140127
  Serious: Yes (Other)
  Sender: FDA-Public Use
  Company Number: None

PATIENT
  Age: 45 Year
  Sex: Male

DRUGS (1)
  1. COPAXONE [Suspect]
     Route: 058

REACTIONS (4)
  - Injection site erythema [None]
  - Injection site discolouration [None]
  - Injection site atrophy [None]
  - Injection site necrosis [None]
